FAERS Safety Report 4715645-9 (Version None)
Quarter: 2005Q3

REPORT INFORMATION
  Report Type: 
  Country: None (occurrence: None)
  Receive Date: 20050713
  Receipt Date: 20050628
  Transmission Date: 20060218
  Serious: Yes (Other)
  Sender: FDA-Public Use
  Company Number: S05-UKI-02358-01

PATIENT
  Sex: Female

DRUGS (2)
  1. CIPRALEX (ESCITALOPRAM) [Suspect]
     Dosage: TABLET PO
     Route: 048
  2. ASPIRIN [Suspect]

REACTIONS (1)
  - HAEMORRHAGE INTRACRANIAL [None]
